APPROVED DRUG PRODUCT: ATOVAQUONE
Active Ingredient: ATOVAQUONE
Strength: 750MG/5ML
Dosage Form/Route: SUSPENSION;ORAL
Application: A210510 | Product #001 | TE Code: AB
Applicant: ABHAI LLC
Approved: May 31, 2019 | RLD: No | RS: No | Type: RX